FAERS Safety Report 16222219 (Version 1)
Quarter: 2019Q2

REPORT INFORMATION
  Report Type: Report from Study
  Country: CN (occurrence: CN)
  Receive Date: 20190422
  Receipt Date: 20190422
  Transmission Date: 20190711
  Serious: Yes (Hospitalization)
  Sender: FDA-Public Use
  Company Number: CN-AMGEN-CHNCT2019060944

PATIENT
  Age: 66 Year
  Sex: Male

DRUGS (26)
  1. CALCIUM CARBONATE WITH D3 [Concomitant]
     Dosage: 0.6 GRAM, BID
     Route: 048
     Dates: start: 20170410
  2. INSULIN GLARGINE [Concomitant]
     Active Substance: INSULIN GLARGINE
     Indication: TYPE 2 DIABETES MELLITUS
     Dosage: 4 INTERNATIONAL UNIT, QN
     Route: 058
     Dates: start: 20150126
  3. OLMESARTAN MEDOXOMIL. [Concomitant]
     Active Substance: OLMESARTAN MEDOXOMIL
     Dosage: 20 MILLIGRAM, BID
     Route: 048
     Dates: start: 20180321
  4. RECOMBINANT HUMAN ERYTHROPOIETIN [Concomitant]
     Active Substance: ERYTHROPOIETIN
     Indication: NEPHROGENIC ANAEMIA
     Dosage: 3000 UNIT, QWK
     Route: 042
     Dates: start: 20180202
  5. SODIUM PHOSPHATES [SODIUM PHOSPHATE] [Concomitant]
     Indication: ABDOMINAL DISCOMFORT
     Dosage: 90 MILLILITER, QOD
     Route: 048
     Dates: start: 20181122, end: 201812
  6. CALCIUM CARBONATE WITH D3 [Concomitant]
     Indication: HYPERPHOSPHATAEMIA
     Dosage: 0.6 GRAM, QD
     Route: 048
     Dates: start: 20170410
  7. MECOBALAMIN [Concomitant]
     Active Substance: METHYLCOBALAMIN
     Indication: EAR PAIN
     Dosage: 1 DOSAGE FORM (1 TABLET), QD
     Route: 048
     Dates: start: 20190315, end: 201903
  8. CINACALCET HCL [Suspect]
     Active Substance: CINACALCET HYDROCHLORIDE
     Indication: HYPERPARATHYROIDISM SECONDARY
     Dosage: 25 MILLIGRAM
     Route: 048
     Dates: start: 20180824, end: 20181122
  9. INSULIN ASPART [Concomitant]
     Active Substance: INSULIN ASPART
     Indication: TYPE 2 DIABETES MELLITUS
     Dosage: UNK UNK, TID, DURING A MEAL
     Route: 058
     Dates: start: 20150126
  10. CARVEDILOL. [Concomitant]
     Active Substance: CARVEDILOL
     Indication: HYPERTENSION
     Dosage: 12.5 MILLIGRAM, BID
     Route: 048
     Dates: start: 20180307
  11. MOSAPRIDE CITRATE [Concomitant]
     Active Substance: MOSAPRIDE CITRATE
     Dosage: 5 MILLIGRAM, TID
     Route: 048
     Dates: start: 20180924, end: 201810
  12. MOSAPRIDE CITRATE [Concomitant]
     Active Substance: MOSAPRIDE CITRATE
     Dosage: 5 MILLIGRAM, TID
     Route: 048
     Dates: start: 20181119
  13. NORFLOXACIN [Concomitant]
     Active Substance: NORFLOXACIN
     Indication: DIARRHOEA
     Dosage: 400 MILLIGRAM ONE TIME
     Route: 048
     Dates: start: 20190222
  14. OLMESARTAN MEDOXOMIL. [Concomitant]
     Active Substance: OLMESARTAN MEDOXOMIL
     Indication: HYPERTENSION
     Dosage: 20 MILLIGRAM, QD
     Route: 048
     Dates: start: 20180321
  15. NIFEDIPINE. [Concomitant]
     Active Substance: NIFEDIPINE
     Indication: HYPERTENSION
     Dosage: 30 MILLIGRAM, BID
     Route: 048
     Dates: start: 20141222
  16. IMRECOXIB. [Concomitant]
     Active Substance: IMRECOXIB
     Indication: FOREARM FRACTURE
     Dosage: 0.1 GRAM, BID
     Route: 048
     Dates: start: 20190409, end: 20190411
  17. ESOMEPRAZOLE SODIUM. [Concomitant]
     Active Substance: ESOMEPRAZOLE SODIUM
     Indication: GASTRITIS
     Dosage: 40 MILLIGRAM, QD
     Route: 042
     Dates: start: 20180409, end: 20190411
  18. CINACALCET HCL [Suspect]
     Active Substance: CINACALCET HYDROCHLORIDE
     Dosage: 25 MILLIGRAM, QOD
     Route: 048
     Dates: start: 20181123, end: 20190407
  19. MOSAPRIDE CITRATE [Concomitant]
     Active Substance: MOSAPRIDE CITRATE
     Indication: ABDOMINAL DISCOMFORT
     Dosage: 5 MILLIGRAM, TID
     Route: 048
     Dates: start: 20180924, end: 201809
  20. HERBAL EXTRACT NOS [Concomitant]
     Active Substance: HERBALS
     Indication: FOREARM FRACTURE
     Dosage: 25 MILLIGRAM, QD
     Route: 042
     Dates: start: 20190409, end: 20190411
  21. LORATADINE. [Concomitant]
     Active Substance: LORATADINE
     Indication: PRURITUS
     Dosage: 10 MILLIGRAM, QD
     Route: 048
     Dates: start: 20171103, end: 20181128
  22. NIMODIPINE. [Concomitant]
     Active Substance: NIMODIPINE
     Indication: DIZZINESS
     Dosage: 30 MILLIGRAM, TID
     Route: 048
     Dates: start: 20171021, end: 20181128
  23. IRON SUCROSE [Concomitant]
     Active Substance: IRON SUCROSE
     Indication: NEPHROGENIC ANAEMIA
     Dosage: 100 MILLIGRAM ONE TIME
     Route: 042
     Dates: start: 20181121
  24. LEVOCARNITINE. [Concomitant]
     Active Substance: LEVOCARNITINE
     Indication: METABOLIC CARDIOMYOPATHY
     Dosage: 1 GRAM, 3 TIMES/WK
     Route: 042
     Dates: start: 20141204
  25. OMEPRAZOLE. [Concomitant]
     Active Substance: OMEPRAZOLE
     Indication: CHRONIC GASTRITIS
     Dosage: 20 MILLIGRAM, QD
     Route: 048
     Dates: start: 20181126
  26. FURSULTIAMINE [Concomitant]
     Active Substance: FURSULTIAMINE
     Indication: EAR PAIN
     Dosage: 50 MILLIGRAM, TID
     Route: 048
     Dates: start: 20190315, end: 201903

REACTIONS (1)
  - Forearm fracture [Not Recovered/Not Resolved]

NARRATIVE: CASE EVENT DATE: 20190409
